FAERS Safety Report 24348576 (Version 2)
Quarter: 2024Q4

REPORT INFORMATION
  Report Type: Report from Study
  Country: CA (occurrence: CA)
  Receive Date: 20240923
  Receipt Date: 20241001
  Transmission Date: 20250115
  Serious: Yes (Hospitalization, Other)
  Sender: TAKEDA
  Company Number: CA-TAKEDA-2024TUS073295

PATIENT
  Age: 76 Year
  Sex: Male

DRUGS (3)
  1. VEDOLIZUMAB [Suspect]
     Active Substance: VEDOLIZUMAB
     Indication: Colitis ulcerative
     Dosage: 300 MILLIGRAM
     Route: 042
     Dates: start: 20170523
  2. WARFARIN [Concomitant]
     Active Substance: WARFARIN
     Dosage: 4 MILLIGRAM, QD
  3. Salofalk [Concomitant]
     Dosage: 500 MILLIGRAM, BID
     Dates: start: 199801

REACTIONS (5)
  - Cerebrovascular accident [Unknown]
  - Fall [Unknown]
  - Gait disturbance [Unknown]
  - Injury [Unknown]
  - Mobility decreased [Unknown]

NARRATIVE: CASE EVENT DATE: 20240801
